FAERS Safety Report 4634174-4 (Version None)
Quarter: 2005Q2

REPORT INFORMATION
  Report Type: 
  Country: None (occurrence: None)
  Receive Date: 20050413
  Receipt Date: 20050331
  Transmission Date: 20051028
  Serious: Yes (Disabling, Other)
  Sender: FDA-Public Use
  Company Number: 200510844EU

PATIENT
  Age: 54 Year
  Sex: Female

DRUGS (4)
  1. METRONIDAZOLE [Suspect]
     Indication: GIARDIASIS
     Route: 048
     Dates: start: 20050324, end: 20050329
  2. CODEINE [Concomitant]
     Indication: POLYNEUROPATHY
     Route: 048
     Dates: start: 19970101
  3. TEMAZEPAM [Concomitant]
     Indication: POLYNEUROPATHY
     Route: 048
     Dates: start: 19970101
  4. DIAZEPAM [Concomitant]
     Indication: POLYNEUROPATHY
     Route: 048

REACTIONS (14)
  - ABDOMINAL DISTENSION [None]
  - ANGINA PECTORIS [None]
  - CHILLS [None]
  - CONFUSIONAL STATE [None]
  - DISTURBANCE IN ATTENTION [None]
  - DYSTONIA [None]
  - HALLUCINATION [None]
  - HEADACHE [None]
  - MENTAL DISORDER [None]
  - MUSCLE SPASMS [None]
  - OEDEMA PERIPHERAL [None]
  - PAIN IN EXTREMITY [None]
  - RESTLESSNESS [None]
  - SLEEP DISORDER [None]
